FAERS Safety Report 17073063 (Version 3)
Quarter: 2020Q1

REPORT INFORMATION
  Report Type: Spontaneous
  Country: JP (occurrence: JP)
  Receive Date: 20191125
  Receipt Date: 20200102
  Transmission Date: 20200409
  Serious: Yes (Other)
  Sender: FDA-Public Use
  Company Number: JP-ASTELLAS-2019JP023230

PATIENT
  Age: 59 Year
  Sex: Female

DRUGS (2)
  1. XOSPATA [Suspect]
     Active Substance: GILTERITINIB
     Indication: ACUTE MYELOID LEUKAEMIA
     Route: 048
     Dates: start: 20190925
  2. XOSPATA [Suspect]
     Active Substance: GILTERITINIB
     Route: 048

REACTIONS (4)
  - Hepatic function abnormal [Recovering/Resolving]
  - Blood lactate dehydrogenase increased [Unknown]
  - Rash [Recovered/Resolved]
  - Leukaemic infiltration extramedullary [Recovered/Resolved]
